FAERS Safety Report 7068020-9 (Version None)
Quarter: 2010Q4

REPORT INFORMATION
  Report Type: 
  Country: None (occurrence: None)
  Receive Date: 20101028
  Receipt Date: 20101021
  Transmission Date: 20110411
  Serious: Yes (Life-Threatening, Hospitalization)
  Sender: FDA-Public Use
  Company Number: CN-SANOFI-AVENTIS-2010SA061490

PATIENT
  Age: 52 Year
  Sex: Male

DRUGS (7)
  1. LANTUS [Suspect]
     Route: 058
     Dates: start: 20100826, end: 20100901
  2. PLAVIX [Suspect]
     Indication: MYOCARDIAL INFARCTION
     Route: 048
     Dates: start: 20100826
  3. CLEXANE [Suspect]
     Indication: THROMBOSIS PROPHYLAXIS
     Route: 058
     Dates: start: 20100826, end: 20100901
  4. ALL OTHER THERAPEUTIC PRODUCTS [Suspect]
     Indication: THROMBOLYSIS
     Dates: start: 20100826, end: 20100901
  5. LEVOFLOXACIN [Suspect]
     Indication: LUNG INFECTION
     Route: 041
     Dates: start: 20100826, end: 20100901
  6. BENAZEPRIL HYDROCHLORIDE [Suspect]
     Indication: HYPERTENSION
     Route: 048
     Dates: start: 20100831, end: 20100901
  7. ISOSORBIDE MONONITRATE [Suspect]
     Route: 048
     Dates: start: 20100830, end: 20100901

REACTIONS (5)
  - DERMATITIS EXFOLIATIVE [None]
  - GENERALISED OEDEMA [None]
  - PRURITUS GENERALISED [None]
  - SHOCK [None]
  - SKIN EXFOLIATION [None]
